FAERS Safety Report 4659102-7 (Version None)
Quarter: 2005Q2

REPORT INFORMATION
  Report Type: 
  Country: None (occurrence: None)
  Receive Date: 20050509
  Receipt Date: 20050428
  Transmission Date: 20051028
  Serious: Yes (Death, Life-Threatening)
  Sender: FDA-Public Use
  Company Number: 2005EU000845

PATIENT
  Age: 51 Year
  Sex: Male

DRUGS (1)
  1. FK506               (TACROLIMUS) [Suspect]
     Indication: LIVER TRANSPLANT
     Dosage: 7.00 MG, UNKNOWN/D, ORAL
     Route: 048

REACTIONS (6)
  - CARDIAC FAILURE [None]
  - HYPOXIA [None]
  - LYMPHADENOPATHY [None]
  - NOCARDIOSIS [None]
  - RESPIRATORY DISTRESS [None]
  - SEPSIS [None]
